FAERS Safety Report 23144511 (Version 1)
Quarter: 2023Q4

REPORT INFORMATION
  Report Type: Spontaneous
  Country: CN (occurrence: CN)
  Receive Date: 20231103
  Receipt Date: 20231103
  Transmission Date: 20240110
  Serious: Yes (Other)
  Sender: FDA-Public Use
  Company Number: CN-SUN PHARMACEUTICAL INDUSTRIES LTD-2023R1-415873

PATIENT
  Age: 52 Year
  Sex: Female
  Weight: 44 kg

DRUGS (3)
  1. PALIPERIDONE [Suspect]
     Active Substance: PALIPERIDONE
     Indication: Schizophrenia
     Dosage: 3 MILLIGRAM, QD
     Route: 048
     Dates: start: 20230926, end: 20231010
  2. PALIPERIDONE [Suspect]
     Active Substance: PALIPERIDONE
     Dosage: 9 MILLIGRAM, QD (MG IN THE MORNING AND 3 MG IN THE AFTERNOON)
     Route: 048
     Dates: start: 20231011, end: 20231014
  3. PALIPERIDONE [Suspect]
     Active Substance: PALIPERIDONE
     Dosage: 3 MILLIGRAM, QD
     Route: 048
     Dates: start: 20231015, end: 20231018

REACTIONS (6)
  - Electrocardiogram abnormal [Recovering/Resolving]
  - Sinus tachycardia [Recovering/Resolving]
  - Listless [Recovering/Resolving]
  - Food refusal [Recovering/Resolving]
  - Apathy [Recovering/Resolving]
  - Selective mutism [Recovering/Resolving]

NARRATIVE: CASE EVENT DATE: 20231015
